FAERS Safety Report 12738976 (Version 1)
Quarter: 2016Q3

REPORT INFORMATION
  Report Type: Spontaneous
  Country: US (occurrence: US)
  Receive Date: 20160912
  Receipt Date: 20160912
  Transmission Date: 20161109
  Serious: Yes (Hospitalization)
  Sender: FDA-Public Use
  Company Number: US-NEOS THERAPEUTICS, LP-2016NEO00024

PATIENT
  Age: 32 Year
  Sex: Female

DRUGS (2)
  1. AMPHETAMINE SALTS [Suspect]
     Active Substance: AMPHETAMINE ASPARTATE\AMPHETAMINE SULFATE\DEXTROAMPHETAMINE SACCHARATE\DEXTROAMPHETAMINE SULFATE
     Indication: ATTENTION DEFICIT/HYPERACTIVITY DISORDER
     Dosage: 30 MG, 1X/DAY
     Route: 065
  2. DISULFIRAM. [Suspect]
     Active Substance: DISULFIRAM
     Indication: ALCOHOL ABUSE
     Dosage: 250 MG, 1X/DAY
     Route: 065

REACTIONS (2)
  - Drug interaction [Recovered/Resolved]
  - Psychotic disorder [Recovered/Resolved]
